FAERS Safety Report 16176565 (Version 2)
Quarter: 2019Q2

REPORT INFORMATION
  Report Type: Spontaneous
  Country: DK (occurrence: DK)
  Receive Date: 20190409
  Receipt Date: 20190507
  Transmission Date: 20190711
  Serious: Yes (Hospitalization, Other)
  Sender: FDA-Public Use
  Company Number: PHHY2019DK076365

PATIENT
  Age: 63 Year
  Sex: Female

DRUGS (16)
  1. VAGIFEM [Concomitant]
     Active Substance: ESTRADIOL
     Indication: HORMONE THERAPY
     Dosage: 20 UG, UNK
     Route: 067
     Dates: start: 20131118
  2. ZOLPIDEM [Concomitant]
     Active Substance: ZOLPIDEM\ZOLPIDEM TARTRATE
     Indication: INSOMNIA
     Dosage: 10 MG, UNK
     Route: 048
     Dates: start: 20140401
  3. GILENYA [Suspect]
     Active Substance: FINGOLIMOD HYDROCHLORIDE
     Dosage: STYRKE: 0,5 MG
     Route: 048
     Dates: start: 201205, end: 20190404
  4. VAGIFEM [Concomitant]
     Active Substance: ESTRADIOL
     Dosage: STYRKE: 10 MIKROGRAM
     Route: 067
     Dates: start: 20131118
  5. RELPAX [Concomitant]
     Active Substance: ELETRIPTAN HYDROBROMIDE
     Dosage: STYRKE: 40 MG.
     Route: 048
     Dates: start: 20130724
  6. EBASTINE [Concomitant]
     Active Substance: EBASTINE
     Dosage: STYRKE: 20 MG.
     Route: 048
     Dates: start: 20150408
  7. EPINEPHRINE. [Concomitant]
     Active Substance: EPINEPHRINE
     Indication: ANAPHYLACTIC SHOCK
     Dosage: UNK (STYRKE: 0,3 MG/DOSIS.)
     Route: 030
     Dates: start: 20150408
  8. GILENYA [Suspect]
     Active Substance: FINGOLIMOD HYDROCHLORIDE
     Indication: MULTIPLE SCLEROSIS
     Dosage: 0.5 MG, UNK
     Route: 048
  9. ATORVASTATIN [Concomitant]
     Active Substance: ATORVASTATIN
     Indication: HYPERCHOLESTEROLAEMIA
     Dosage: 10 MG, UNK
     Route: 048
     Dates: start: 20180816
  10. CODEINE [Concomitant]
     Active Substance: CODEINE
     Indication: PAIN
     Dosage: UNK
     Route: 048
  11. RELPAX [Concomitant]
     Active Substance: ELETRIPTAN HYDROBROMIDE
     Indication: MIGRAINE
     Dosage: 40 MG, UNK
     Route: 048
     Dates: start: 20130724
  12. CODEINE [Concomitant]
     Active Substance: CODEINE
     Dosage: DOSIS: VARIERENDESTYRKE: VARIERENDE
     Route: 048
  13. METOPROLOL. [Concomitant]
     Active Substance: METOPROLOL
     Indication: HEART RATE IRREGULAR
     Dosage: 50 MG, UNK (STYRKE: 25 MG.)
     Route: 048
     Dates: start: 20170504
  14. ATORVASTATIN [Concomitant]
     Active Substance: ATORVASTATIN
     Dosage: STYRKE: 10 MG.
     Route: 048
     Dates: start: 20180816
  15. EBASTINE [Concomitant]
     Active Substance: EBASTINE
     Indication: SEASONAL ALLERGY
     Dosage: 20 MG, UNK
     Route: 048
     Dates: start: 20150408
  16. CLOBETASOL [Concomitant]
     Active Substance: CLOBETASOL
     Indication: SKIN DISORDER
     Dosage: 1 DF, UNK (STYRKE: 0,5 MG/G.)
     Route: 003
     Dates: start: 20170626, end: 20190211

REACTIONS (1)
  - Vulval cancer stage 0 [Not Recovered/Not Resolved]

NARRATIVE: CASE EVENT DATE: 20190117
